FAERS Safety Report 19187965 (Version 1)
Quarter: 2021Q2

REPORT INFORMATION
  Report Type: Report from Study
  Country: None (occurrence: US)
  Receive Date: 20210428
  Receipt Date: 20210428
  Transmission Date: 20210717
  Serious: Yes (Other)
  Sender: FDA-Public Use
  Company Number: US-ABBVIE-21K-163-3879320-00

PATIENT
  Sex: Female

DRUGS (2)
  1. RINVOQ [Suspect]
     Active Substance: UPADACITINIB
     Route: 048
     Dates: end: 20210426
  2. RINVOQ [Suspect]
     Active Substance: UPADACITINIB
     Indication: BONE DENSITY ABNORMAL
     Route: 048

REACTIONS (1)
  - Surgery [Unknown]
